FAERS Safety Report 12080314 (Version 1)
Quarter: 2016Q1

REPORT INFORMATION
  Report Type: Report from Study
  Country: US (occurrence: US)
  Receive Date: 20160216
  Receipt Date: 20160216
  Transmission Date: 20160526
  Serious: Yes (Hospitalization)
  Sender: FDA-Public Use
  Company Number: US-JNJFOC-20160212465

PATIENT
  Sex: Female

DRUGS (1)
  1. IMBRUVICA [Suspect]
     Active Substance: IBRUTINIB
     Indication: CHRONIC LYMPHOCYTIC LEUKAEMIA
     Route: 048
     Dates: start: 20140417

REACTIONS (8)
  - Balance disorder [Unknown]
  - Hyponatraemia [Unknown]
  - Confusional state [Unknown]
  - Cerebrovascular accident [Unknown]
  - Headache [Unknown]
  - Fall [Unknown]
  - Abasia [Unknown]
  - Urinary tract infection [Unknown]
